FAERS Safety Report 17070364 (Version 2)
Quarter: 2020Q1

REPORT INFORMATION
  Report Type: Spontaneous
  Country: US (occurrence: US)
  Receive Date: 20191125
  Receipt Date: 20200109
  Transmission Date: 20200409
  Serious: Yes (Hospitalization)
  Sender: FDA-Public Use
  Company Number: US-BAYER-2019-208547

PATIENT
  Age: 25 Year
  Weight: 73.48 kg

DRUGS (1)
  1. EOVIST [Suspect]
     Active Substance: GADOXETATE DISODIUM
     Indication: CHOLANGIOGRAM
     Dosage: 10 ML, ONCE
     Dates: start: 20191109, end: 20191109

REACTIONS (3)
  - Cough [Recovering/Resolving]
  - Chest discomfort [Recovering/Resolving]
  - Speech disorder [Recovering/Resolving]

NARRATIVE: CASE EVENT DATE: 20191109
